FAERS Safety Report 7453380-7 (Version None)
Quarter: 2011Q2

REPORT INFORMATION
  Report Type: 
  Country: None (occurrence: None)
  Receive Date: 20110502
  Receipt Date: 20110429
  Transmission Date: 20111010
  Serious: Yes (Other)
  Sender: FDA-Public Use
  Company Number: CHPA2011GR06107

PATIENT
  Age: 38 Year
  Sex: Female

DRUGS (1)
  1. OTRIVIN [Suspect]
     Dosage: 1 DF, QD
     Route: 045

REACTIONS (2)
  - INCORRECT DRUG ADMINISTRATION DURATION [None]
  - GLUCOSE TOLERANCE INCREASED [None]
